FAERS Safety Report 12346305 (Version 1)
Quarter: 2016Q2

REPORT INFORMATION
  Report Type: Spontaneous
  Country: US (occurrence: None)
  Receive Date: 20160506
  Receipt Date: 20160506
  Transmission Date: 20160815
  Serious: Yes (Life-Threatening, Hospitalization)
  Sender: FDA-Public Use
  Company Number: None

PATIENT
  Age: 56 Year
  Sex: Female
  Weight: 138.8 kg

DRUGS (1)
  1. CUBICIN [Suspect]
     Active Substance: DAPTOMYCIN
     Indication: OSTEOMYELITIS
     Route: 042
     Dates: start: 20160412, end: 20160503

REACTIONS (4)
  - Fluid overload [None]
  - Eosinophil count increased [None]
  - Oedema [None]
  - Eosinophilic pneumonia [None]

NARRATIVE: CASE EVENT DATE: 20160501
